FAERS Safety Report 8442698-7 (Version None)
Quarter: 2012Q2

REPORT INFORMATION
  Report Type: 
  Country: None (occurrence: None)
  Receive Date: 20120615
  Receipt Date: 20120608
  Transmission Date: 20120825
  Serious: Yes (Other)
  Sender: FDA-Public Use
  Company Number: CA-JNJFOC-20120605041

PATIENT
  Sex: Male

DRUGS (2)
  1. STELARA [Suspect]
     Indication: PSORIASIS
     Route: 058
     Dates: start: 20110707, end: 20120522
  2. STELARA [Suspect]
     Route: 058
     Dates: start: 20120529

REACTIONS (1)
  - ARTERIAL REPAIR [None]
